FAERS Safety Report 18545528 (Version 1)
Quarter: 2020Q4

REPORT INFORMATION
  Report Type: Spontaneous
  Country: US (occurrence: US)
  Receive Date: 20201125
  Receipt Date: 20201125
  Transmission Date: 20210114
  Serious: Yes (Other)
  Sender: FDA-Public Use
  Company Number: None

PATIENT
  Age: 33 Year
  Sex: Male
  Weight: 55.7 kg

DRUGS (6)
  1. DEFERASIROX720 MG DAILY [Concomitant]
     Dates: start: 20190429
  2. OXYCODONE 5 MG Q6H PRN [Concomitant]
     Dates: start: 20170526
  3. APIXABAN 5 MG BID [Concomitant]
     Dates: start: 20180514
  4. BAMLANIVIMAB. [Suspect]
     Active Substance: BAMLANIVIMAB
     Indication: COVID-19
     Dosage: ?          OTHER FREQUENCY:ONCE;?
     Route: 042
     Dates: start: 20201124, end: 20201124
  5. FOLIC ACID 1 MG PO DAILY [Concomitant]
     Dates: start: 20161001
  6. HYDROXYUREA 500 MG BID [Concomitant]
     Dates: start: 20140325, end: 20191119

REACTIONS (2)
  - Sickle cell anaemia with crisis [None]
  - Pain [None]

NARRATIVE: CASE EVENT DATE: 20201124
